FAERS Safety Report 6509692-4 (Version None)
Quarter: 2009Q4

REPORT INFORMATION
  Report Type: 
  Country: None (occurrence: None)
  Receive Date: 20091221
  Receipt Date: 20091221
  Transmission Date: 20100525
  Serious: No
  Sender: FDA-Public Use
  Company Number: None

PATIENT
  Age: 41 Year
  Sex: Female
  Weight: 80.7 kg

DRUGS (1)
  1. DOXORUBICIN [Suspect]
     Indication: BREAST CANCER
     Dosage: 109 MG OTHER IV
     Route: 042
     Dates: start: 20060321, end: 20060523

REACTIONS (1)
  - CARDIAC FAILURE [None]
